FAERS Safety Report 16370445 (Version 1)
Quarter: 2019Q2

REPORT INFORMATION
  Report Type: Spontaneous
  Country: CN (occurrence: CN)
  Receive Date: 20190530
  Receipt Date: 20190530
  Transmission Date: 20190711
  Serious: Yes (Other)
  Sender: FDA-Public Use
  Company Number: CN-BAXTER-2019BAX010507

PATIENT
  Age: 34 Year
  Sex: Female
  Weight: 97 kg

DRUGS (4)
  1. ENDOXAN [Suspect]
     Active Substance: CYCLOPHOSPHAMIDE
     Indication: BREAST CANCER FEMALE
     Dosage: ENDOXAN + NS 55 ML, FIRST TIME CHEMOTHERAPY
     Route: 042
     Dates: start: 20190328, end: 20190328
  2. 0.9% SODIUM CHLORIDE INJECTION [Suspect]
     Active Substance: SODIUM CHLORIDE
     Indication: MEDICATION DILUTION
     Dosage: ENDOXAN + NS, FIRST TIME CHEMOTHERAPY
     Route: 042
     Dates: start: 20190328, end: 20190328
  3. 0.9% SODIUM CHLORIDE INJECTION [Suspect]
     Active Substance: SODIUM CHLORIDE
     Dosage: AIDASHENG + NS, FIRST TIME CHEMOTHERAPY
     Route: 041
     Dates: start: 20190328, end: 20190328
  4. AIDASHENG [Suspect]
     Active Substance: EPIRUBICIN HYDROCHLORIDE
     Indication: BREAST CANCER FEMALE
     Dosage: AIDASHENG + NS 100 ML, FIRST TIME CHEMOTHERAPY
     Route: 041
     Dates: start: 20190328, end: 20190328

REACTIONS (2)
  - Leukopenia [Recovered/Resolved]
  - Agranulocytosis [Recovered/Resolved]

NARRATIVE: CASE EVENT DATE: 20190409
